FAERS Safety Report 5083835-4 (Version None)
Quarter: 2006Q3

REPORT INFORMATION
  Report Type: 
  Country: None (occurrence: None)
  Receive Date: 20060818
  Receipt Date: 20060707
  Transmission Date: 20061208
  Serious: Yes (Hospitalization)
  Sender: FDA-Public Use
  Company Number: GB-SANOFI-SYNTHELABO-A01200605309

PATIENT
  Age: 20 Day

DRUGS (1)
  1. PRIMACOR [Suspect]
     Indication: CARDIAC DISORDER
     Dosage: 500 NANOGRAMS/KG/MIN
     Route: 042

REACTIONS (7)
  - CONTUSION [None]
  - EXTRAVASATION [None]
  - NECROSIS [None]
  - THROMBOCYTOPENIA [None]
  - THROMBOSIS [None]
  - VASOCONSTRICTION [None]
  - WRONG TECHNIQUE IN DRUG USAGE PROCESS [None]
